FAERS Safety Report 5391333-3 (Version None)
Quarter: 2007Q3

REPORT INFORMATION
  Report Type: 
  Country: None (occurrence: None)
  Receive Date: 20070719
  Receipt Date: 20070712
  Transmission Date: 20080115
  Serious: Yes (Other)
  Sender: FDA-Public Use
  Company Number: B0479673A

PATIENT
  Age: 8 Month
  Sex: Male
  Weight: 8 kg

DRUGS (2)
  1. CEFUROXIME [Suspect]
     Dosage: 2.5ML TWICE PER DAY
     Route: 048
     Dates: start: 20070701, end: 20070701
  2. FOSFOMYCIN [Concomitant]
     Indication: URINARY TRACT INFECTION
     Route: 065

REACTIONS (4)
  - PYREXIA [None]
  - THROMBOCYTOPENIA [None]
  - URINARY TRACT INFECTION [None]
  - VIRAL INFECTION [None]
